FAERS Safety Report 8620236-3 (Version None)
Quarter: 2012Q3

REPORT INFORMATION
  Report Type: 
  Country: None (occurrence: None)
  Receive Date: 20120824
  Receipt Date: 20120810
  Transmission Date: 20120928
  Serious: Yes (Hospitalization, Other)
  Sender: FDA-Public Use
  Company Number: JP-VERTEX PHARMACEUTICAL INC.-AE-2012-003188

PATIENT
  Age: 67 Year
  Sex: Male

DRUGS (19)
  1. VX-950 [Suspect]
     Indication: HEPATITIS C
     Dosage: 2250 MG, UNK
     Route: 048
     Dates: start: 20120224, end: 20120228
  2. REBETOL [Suspect]
     Dosage: 400 MG, UNK
     Route: 048
     Dates: start: 20120327, end: 20120603
  3. LOXONIN [Concomitant]
     Route: 048
     Dates: start: 20120224
  4. LANSOPRAZOLE [Concomitant]
     Route: 048
     Dates: start: 20120224
  5. LANSOPRAZOLE [Concomitant]
     Dosage: UNK
     Route: 048
     Dates: end: 20120607
  6. DOXAZOSIN MESYLATE [Concomitant]
     Route: 048
  7. REBETOL [Suspect]
     Indication: HEPATITIS C
     Route: 048
     Dates: start: 20120224, end: 20120228
  8. PETROLATUM SALICYLATE [Concomitant]
     Route: 061
     Dates: start: 20120224
  9. NORVASC [Concomitant]
     Route: 048
  10. REBETOL [Suspect]
     Dosage: 800 MG, UNK
     Route: 048
     Dates: start: 20120302, end: 20120326
  11. LOXONIN [Concomitant]
     Dosage: UNK
     Route: 048
  12. ANTEBATE OINTMENT [Concomitant]
     Route: 061
     Dates: start: 20120224
  13. ASPIRIN [Concomitant]
     Route: 048
  14. DIOVAN [Concomitant]
     Route: 048
  15. PEGINTRON                          /01543001/ [Suspect]
     Indication: HEPATITIS C
     Dosage: 1.5 A?G/KG, UNK
     Route: 058
     Dates: start: 20120224, end: 20120612
  16. HUMALOG [Concomitant]
     Dosage: 6 UT, UNK
     Route: 058
  17. LASIX [Concomitant]
     Route: 048
  18. PRIMPERAN TAB [Concomitant]
     Dosage: UNK UNK, PRN
     Route: 048
     Dates: end: 20120710
  19. REBETOL [Suspect]
     Dosage: 400 UNK, UNK
     Route: 048
     Dates: end: 20120619

REACTIONS (4)
  - NEUTROPHIL COUNT DECREASED [None]
  - DECREASED APPETITE [None]
  - ERYTHEMA [None]
  - NAUSEA [None]
